FAERS Safety Report 8236044-1 (Version None)
Quarter: 2012Q1

REPORT INFORMATION
  Report Type: 
  Country: None (occurrence: None)
  Receive Date: 20120326
  Receipt Date: 20120320
  Transmission Date: 20120608
  Serious: Yes (Other)
  Sender: FDA-Public Use
  Company Number: KR-ASTRAZENECA-2012SE19054

PATIENT
  Age: 68 Year
  Sex: Female

DRUGS (4)
  1. MEXESIN [Concomitant]
     Indication: RED BLOOD CELL SEDIMENTATION RATE INCREASED
     Route: 048
     Dates: start: 20110901
  2. MEXESIN [Concomitant]
     Indication: BACK PAIN
     Route: 048
     Dates: start: 20110901
  3. ARIMIDEX [Suspect]
     Indication: BREAST CANCER
     Route: 048
     Dates: start: 20101118
  4. CALCIUM CARBONATE [Concomitant]
     Route: 048
     Dates: start: 20120201

REACTIONS (4)
  - INFLAMMATION [None]
  - BACK PAIN [None]
  - FALL [None]
  - SPINAL FRACTURE [None]
